FAERS Safety Report 20871688 (Version 4)
Quarter: 2023Q2

REPORT INFORMATION
  Report Type: Spontaneous
  Country: ES (occurrence: ES)
  Receive Date: 20220525
  Receipt Date: 20230612
  Transmission Date: 20230721
  Serious: Yes (Hospitalization)
  Sender: FDA-Public Use
  Company Number: ES-Merck Healthcare KGaA-9310401

PATIENT
  Age: 70 Year
  Sex: Female
  Weight: 78 kg

DRUGS (24)
  1. OMEPRAZOLE [Suspect]
     Active Substance: OMEPRAZOLE
     Indication: Product used for unknown indication
     Dosage: 40 MILLIGRAM,QD(2 CAP/24 HRS)
     Route: 048
     Dates: start: 20201217
  2. INDOMETHACIN [Suspect]
     Active Substance: INDOMETHACIN
     Indication: Product used for unknown indication
     Dosage: UNK, Q8H,(1CP/8H)
     Route: 048
     Dates: start: 20210120
  3. INDOMETHACIN [Suspect]
     Active Substance: INDOMETHACIN
     Dosage: 75 MILLIGRAM,Q8H,(TID)
     Route: 048
     Dates: start: 20220120, end: 20220210
  4. INDOMETHACIN [Suspect]
     Active Substance: INDOMETHACIN
     Dosage: 75 MILLIGRAM,Q8H,(TID)
     Route: 048
     Dates: start: 20220217
  5. METAMIZOLE [Concomitant]
     Active Substance: METAMIZOLE
     Indication: Product used for unknown indication
     Dosage: 575 MILLIGRAM, BID,1CP/12H
     Route: 048
     Dates: start: 20201122
  6. AMOROLFINE [Concomitant]
     Active Substance: AMOROLFINE
     Indication: Product used for unknown indication
     Dosage: UNK, 50 MG/ML, 2 APPLICATIONS/7DAYS TOPICAL (NAILS)
     Route: 061
     Dates: start: 20200228
  7. DIAZEPAM [Concomitant]
     Active Substance: DIAZEPAM
     Indication: Product used for unknown indication
     Dosage: 7.5 MILLIGRAM, QD
     Route: 048
     Dates: start: 20210730
  8. KETOTIFEN [Concomitant]
     Active Substance: KETOTIFEN
     Indication: Product used for unknown indication
     Dosage: 0.25 MILLIGRAM PER MILLILITRE, 0.25 MG/ML 2 EYE DROPS EVERY 24H (OCCASIONALLY)
     Route: 065
  9. LEVOTHYROXINE [Concomitant]
     Active Substance: LEVOTHYROXINE
     Indication: Product used for unknown indication
     Dosage: 88 MICROGRAM,SATURDAY AND SUNDAY
     Route: 048
     Dates: start: 202102
  10. LEVOTHYROXINE [Concomitant]
     Active Substance: LEVOTHYROXINE
     Dosage: 100 MICROGRAM, L-V
     Route: 048
     Dates: start: 20210223
  11. ESLICARBAZEPINE [Concomitant]
     Active Substance: ESLICARBAZEPINE
     Indication: Product used for unknown indication
     Dosage: UNK, HS 1/2CP AT NIGHT
     Route: 065
     Dates: start: 20210120, end: 20220210
  12. ALPRAZOLAM [Concomitant]
     Active Substance: ALPRAZOLAM
     Indication: Product used for unknown indication
     Dosage: UNK, 0.25MG-0.75MG
     Route: 065
  13. ALPRAZOLAM [Concomitant]
     Active Substance: ALPRAZOLAM
     Dosage: 0.25 MILLIGRAM, QD
     Route: 048
     Dates: start: 201301
  14. ALPRAZOLAM [Concomitant]
     Active Substance: ALPRAZOLAM
     Dosage: 1.5 MILLIGRAM, QD
     Route: 048
     Dates: start: 20211029
  15. METHYLPREDNISOLONE [Concomitant]
     Active Substance: METHYLPREDNISOLONE
     Indication: Product used for unknown indication
     Dosage: 0.1 PERCENT, 1 APPLICATION FOLLOWING POSOLOGY
     Route: 065
  16. PREDNISONE [Concomitant]
     Active Substance: PREDNISONE
     Indication: Product used for unknown indication
     Dosage: 50 MILLIGRAM, QD (START:13-APR-2022 00:00)
     Route: 048
     Dates: end: 20220421
  17. PREDNISONE [Concomitant]
     Active Substance: PREDNISONE
     Dosage: 40 MILLIGRAM
     Route: 065
     Dates: start: 20220422
  18. ACETAMINOPHEN [Concomitant]
     Active Substance: ACETAMINOPHEN
     Indication: Product used for unknown indication
     Dosage: 1 GRAM, QD
     Route: 048
     Dates: start: 202111
  19. PREGABALIN [Concomitant]
     Active Substance: PREGABALIN
     Indication: Product used for unknown indication
     Dosage: 50 MILLIGRAM,QD, (25 MG, BID)
     Route: 065
     Dates: start: 20211222, end: 20220120
  20. FAMOTIDINE [Concomitant]
     Active Substance: FAMOTIDINE
     Indication: Product used for unknown indication
     Dosage: 20 MILLIGRAM, QD
     Route: 065
  21. FAMOTIDINE [Concomitant]
     Active Substance: FAMOTIDINE
     Dosage: 40 MILLIGRAM, QD
     Route: 065
  22. CANDESARTAN [Concomitant]
     Active Substance: CANDESARTAN
     Indication: Product used for unknown indication
     Dosage: UNK, QD 1/2COMP/24H
     Route: 065
  23. CANDESARTAN [Concomitant]
     Active Substance: CANDESARTAN
     Dosage: 8 MILLIGRAM, QD (1/2COMP/24H)
     Route: 048
     Dates: start: 20190521
  24. ATORVASTATIN [Concomitant]
     Active Substance: ATORVASTATIN
     Indication: Product used for unknown indication
     Dosage: 20 MILLIGRAM, QD
     Route: 048
     Dates: start: 20190521

REACTIONS (2)
  - Renal failure [Recovered/Resolved with Sequelae]
  - Acute kidney injury [Recovered/Resolved with Sequelae]

NARRATIVE: CASE EVENT DATE: 20220324
